FAERS Safety Report 18695542 (Version 3)
Quarter: 2021Q1

REPORT INFORMATION
  Report Type: Report from Study
  Country: US (occurrence: US)
  Receive Date: 20210104
  Receipt Date: 20210312
  Transmission Date: 20210419
  Serious: Yes (Death, Hospitalization, Other)
  Sender: FDA-Public Use
  Company Number: US-BAYER-2020-284738

PATIENT
  Age: 73 Year
  Sex: Male
  Weight: 56.69 kg

DRUGS (13)
  1. STIVARGA [Suspect]
     Active Substance: REGORAFENIB
     Indication: COLON CANCER
     Dosage: 80 MG DAILY 21 OUT OF DAYS
     Route: 048
     Dates: start: 20201216
  2. TYLENOL [Concomitant]
     Active Substance: ACETAMINOPHEN
  3. PILOCARPINE. [Concomitant]
     Active Substance: PILOCARPINE
  4. FISH OIL [Concomitant]
     Active Substance: FISH OIL
  5. DAILY?VITE [Concomitant]
  6. ROPINIROLE. [Concomitant]
     Active Substance: ROPINIROLE
  7. VITAMIN B COMPLEX [Concomitant]
     Active Substance: CYANOCOBALAMIN\DEXPANTHENOL\NIACINAMIDE\PYRIDOXINE HYDROCHLORIDE\RIBOFLAVIN 5^-PHOSPHATE SODIUM\THIAMINE HYDROCHLORIDE\VITAMIN B COMPLEX
  8. GABAPENTIN. [Concomitant]
     Active Substance: GABAPENTIN
     Indication: PARAESTHESIA
  9. ELIQUIS [Concomitant]
     Active Substance: APIXABAN
  10. LIDOCAINE VISCOUS [Concomitant]
     Active Substance: LIDOCAINE HYDROCHLORIDE
  11. GLYCERINE [Concomitant]
     Active Substance: GLYCERIN
  12. FLEXITOL [Concomitant]
  13. VITAMIN D3 [Concomitant]
     Active Substance: CHOLECALCIFEROL

REACTIONS (18)
  - Hyperkeratosis [Not Recovered/Not Resolved]
  - Fatigue [None]
  - Skin lesion [Unknown]
  - Abdominal pain [Unknown]
  - Product container issue [None]
  - Gait disturbance [Not Recovered/Not Resolved]
  - Limb discomfort [Not Recovered/Not Resolved]
  - Pain in extremity [None]
  - Off label use [None]
  - Palmar-plantar erythrodysaesthesia syndrome [Not Recovered/Not Resolved]
  - Hospitalisation [Unknown]
  - Pain in extremity [Not Recovered/Not Resolved]
  - Neuropathy peripheral [Recovering/Resolving]
  - Decreased appetite [Unknown]
  - Death [Fatal]
  - Biliary obstruction [Unknown]
  - Pain in extremity [Unknown]
  - Blood bilirubin increased [Unknown]

NARRATIVE: CASE EVENT DATE: 20201221
